FAERS Safety Report 17942220 (Version 3)
Quarter: 2020Q3

REPORT INFORMATION
  Report Type: Spontaneous
  Country: AU (occurrence: AU)
  Receive Date: 20200625
  Receipt Date: 20200706
  Transmission Date: 20201103
  Serious: Yes (Other)
  Sender: FDA-Public Use
  Company Number: AU-TEVA-2020-AU-1788427

PATIENT
  Sex: Male

DRUGS (4)
  1. IMATINIB MESYLATE. [Suspect]
     Active Substance: IMATINIB MESYLATE
     Route: 065
  2. DASATINIB. [Suspect]
     Active Substance: DASATINIB
     Route: 065
  3. NILOTINIB [Suspect]
     Active Substance: NILOTINIB
     Route: 065
  4. PONATINIB [Suspect]
     Active Substance: PONATINIB
     Route: 065

REACTIONS (3)
  - Drug resistance [Unknown]
  - Philadelphia chromosome positive [Unknown]
  - Disease progression [Unknown]
